FAERS Safety Report 10083786 (Version 2)
Quarter: 2014Q2

REPORT INFORMATION
  Report Type: Spontaneous
  Country: US (occurrence: US)
  Receive Date: 20140417
  Receipt Date: 20140509
  Transmission Date: 20141212
  Serious: Yes (Hospitalization)
  Sender: FDA-Public Use
  Company Number: US-BAYER-2014-056533

PATIENT
  Age: 24 Year
  Sex: Female

DRUGS (8)
  1. YAZ [Suspect]
  2. GIANVI [Suspect]
  3. ADVIL [Concomitant]
  4. ACETAMINOPHEN [Concomitant]
     Dosage: UNK
     Dates: start: 20110111
  5. MOTRIN [Concomitant]
     Dosage: UNK
     Dates: start: 20110111
  6. HYDROCODONE/ACETAMINOPHEN [Concomitant]
     Dosage: 5-500
     Dates: start: 20110113
  7. CEPHALEXIN [Concomitant]
     Dosage: 250 MG, UNK
     Dates: start: 20110225
  8. OXYCODONE W/PARACETAMOL [Concomitant]
     Dosage: 5-325
     Dates: start: 20110227

REACTIONS (2)
  - Pulmonary embolism [None]
  - Deep vein thrombosis [None]
